FAERS Safety Report 11966703 (Version 1)
Quarter: 2016Q1

REPORT INFORMATION
  Report Type: Spontaneous
  Country: US (occurrence: US)
  Receive Date: 20160127
  Receipt Date: 20160127
  Transmission Date: 20160526
  Serious: No
  Sender: FDA-Public Use
  Company Number: US-ASTRAZENECA-2016SE05064

PATIENT

DRUGS (2)
  1. CELEXA [Interacting]
     Active Substance: CITALOPRAM HYDROBROMIDE
     Route: 065
  2. CAPRELSA [Suspect]
     Active Substance: VANDETANIB
     Route: 048

REACTIONS (1)
  - Drug interaction [Unknown]
